FAERS Safety Report 4534731-X (Version None)
Quarter: 2004Q4

REPORT INFORMATION
  Report Type: 
  Country: None (occurrence: None)
  Receive Date: 20041222
  Receipt Date: 20031218
  Transmission Date: 20050328
  Serious: No
  Sender: FDA-Public Use
  Company Number: US-BRISTOL-MYERS SQUIBB COMPANY-12461901

PATIENT
  Age: 70 Year
  Sex: Male

DRUGS (5)
  1. PRAVACHOL [Suspect]
     Indication: BLOOD CHOLESTEROL INCREASED
     Route: 048
     Dates: start: 19991208
  2. COUMADIN [Concomitant]
  3. DIOVAN HCT [Concomitant]
  4. RYTHMOL [Concomitant]
  5. LANOXIN [Concomitant]

REACTIONS (1)
  - DRUG INEFFECTIVE [None]
